FAERS Safety Report 8035805-1 (Version None)
Quarter: 2012Q1

REPORT INFORMATION
  Report Type: 
  Country: None (occurrence: None)
  Receive Date: 20120111
  Receipt Date: 20120103
  Transmission Date: 20120608
  Serious: Yes (Hospitalization)
  Sender: FDA-Public Use
  Company Number: US-BAYER-2011-027215

PATIENT
  Age: 23 Year
  Sex: Female
  Weight: 99.773 kg

DRUGS (4)
  1. IBUPROFEN [Concomitant]
     Dosage: 600 MG, TID
     Route: 048
     Dates: start: 20080524
  2. YASMIN [Suspect]
     Indication: CONTRACEPTION
     Dosage: UNK
     Route: 048
     Dates: start: 20080501, end: 20080801
  3. PHENERGAN [Concomitant]
     Dosage: 25 MG, EVERY 6 HOURS AS NEEDED
     Route: 048
     Dates: start: 20080524
  4. PERCOCET [Concomitant]
     Dosage: 5 MG/500 MG Q EVERY 4 HOURS AS NEEDED
     Route: 048
     Dates: start: 20080524

REACTIONS (15)
  - BILE DUCT STONE [None]
  - VOMITING [None]
  - PAIN IN EXTREMITY [None]
  - GENERAL PHYSICAL HEALTH DETERIORATION [None]
  - ABDOMINAL PAIN [None]
  - NAUSEA [None]
  - GALLBLADDER DISORDER [None]
  - OEDEMA PERIPHERAL [None]
  - DEEP VEIN THROMBOSIS [None]
  - CHOLECYSTITIS CHRONIC [None]
  - ANXIETY [None]
  - EMOTIONAL DISTRESS [None]
  - DYSPNOEA [None]
  - PULMONARY EMBOLISM [None]
  - PANCREATITIS [None]
